FAERS Safety Report 9205020 (Version 2)
Quarter: 2013Q2

REPORT INFORMATION
  Report Type: Report from Study
  Country: CA (occurrence: CA)
  Receive Date: 20130402
  Receipt Date: 20130426
  Transmission Date: 20140414
  Serious: Yes (Hospitalization, Other)
  Sender: FDA-Public Use
  Company Number: CA-NAPPMUNDI-CAN-2013-0003958

PATIENT
  Sex: Female
  Weight: 72.6 kg

DRUGS (6)
  1. OXYNEO [Suspect]
     Indication: ARTHRITIS
     Dosage: 80 MG, TID
     Route: 065
     Dates: start: 2012
  2. OXYNEO [Suspect]
     Indication: NECK PAIN
     Dosage: UNK, HS
     Route: 065
  3. OXYNEO [Suspect]
     Dosage: 40 MG, TID
     Route: 065
     Dates: start: 2012, end: 201303
  4. OXYNEO [Suspect]
     Dosage: 60 MG, HS
     Dates: start: 2012, end: 201303
  5. PERCOCET                           /00867901/ [Concomitant]
     Indication: ARTHRITIS
     Dosage: 30 MG, UNK
     Route: 065
  6. PERCOCET                           /00867901/ [Concomitant]
     Indication: NECK PAIN

REACTIONS (7)
  - Liver disorder [Not Recovered/Not Resolved]
  - Haematuria [Not Recovered/Not Resolved]
  - Haematochezia [Not Recovered/Not Resolved]
  - Gastrointestinal disorder [Not Recovered/Not Resolved]
  - Cystitis [Not Recovered/Not Resolved]
  - Fall [Unknown]
  - Malaise [Unknown]
